FAERS Safety Report 24040301 (Version 1)
Quarter: 2024Q3

REPORT INFORMATION
  Report Type: Spontaneous
  Country: CN (occurrence: CN)
  Receive Date: 20240702
  Receipt Date: 20240702
  Transmission Date: 20241016
  Serious: Yes (Other)
  Sender: ACCORD
  Company Number: CN-Accord-432340

PATIENT
  Age: 62 Year
  Sex: Male

DRUGS (8)
  1. METHOTREXATE [Suspect]
     Active Substance: METHOTREXATE
     Indication: Acute leukaemia
     Dosage: 1G D1
     Dates: start: 20230828, end: 2023
  2. CYCLOPHOSPHAMIDE [Suspect]
     Active Substance: CYCLOPHOSPHAMIDE
     Indication: Acute leukaemia
     Dates: start: 20230828, end: 2023
  3. CYTARABINE [Suspect]
     Active Substance: CYTARABINE
     Indication: Acute leukaemia
     Dosage: 6G D2-3
     Dates: start: 20230828, end: 2023
  4. DEXAMETHASONE [Suspect]
     Active Substance: DEXAMETHASONE
     Indication: Acute leukaemia
     Dates: start: 20230828, end: 2023
  5. DOXORUBICIN [Suspect]
     Active Substance: DOXORUBICIN
     Indication: Acute leukaemia
     Dates: start: 20230828, end: 2023
  6. VINCRISTINE [Suspect]
     Active Substance: VINCRISTINE
     Indication: Acute leukaemia
     Dates: start: 20230828, end: 2023
  7. NIRMATRELVIR [Concomitant]
     Active Substance: NIRMATRELVIR
     Indication: COVID-19
     Dates: start: 202306
  8. RITONAVIR [Concomitant]
     Active Substance: RITONAVIR
     Indication: COVID-19
     Dates: start: 202306

REACTIONS (2)
  - Cerebral haemorrhage [Unknown]
  - Myelosuppression [Unknown]

NARRATIVE: CASE EVENT DATE: 20230101
